FAERS Safety Report 7266005-0 (Version None)
Quarter: 2011Q1

REPORT INFORMATION
  Report Type: 
  Country: None (occurrence: None)
  Receive Date: 20110131
  Receipt Date: 20110120
  Transmission Date: 20110831
  Serious: Yes (Hospitalization, Other)
  Sender: FDA-Public Use
  Company Number: US-JNJFOC-20110103164

PATIENT
  Sex: Male
  Weight: 66 kg

DRUGS (17)
  1. REMICADE [Suspect]
     Route: 042
  2. REMICADE [Suspect]
     Route: 042
  3. REMICADE [Suspect]
     Route: 042
  4. REMICADE [Suspect]
     Indication: CROHN'S DISEASE
     Route: 042
  5. REMICADE [Suspect]
     Route: 042
  6. REMICADE [Suspect]
     Route: 042
  7. REMICADE [Suspect]
     Route: 042
  8. REMICADE [Suspect]
     Route: 042
  9. REMICADE [Suspect]
     Route: 042
  10. REMICADE [Suspect]
     Route: 042
  11. REMICADE [Suspect]
     Route: 042
  12. REMICADE [Suspect]
     Route: 042
  13. REMICADE [Suspect]
     Route: 042
  14. REMICADE [Suspect]
     Route: 042
  15. PREDNISONE [Concomitant]
     Indication: CROHN'S DISEASE
  16. REMICADE [Suspect]
     Route: 042
  17. REMICADE [Suspect]
     Route: 042

REACTIONS (6)
  - ACCIDENT AT HOME [None]
  - ABDOMINAL INJURY [None]
  - LARGE INTESTINE PERFORATION [None]
  - POSTOPERATIVE ABSCESS [None]
  - COLECTOMY [None]
  - CANDIDIASIS [None]
